FAERS Safety Report 7963762-2 (Version None)
Quarter: 2011Q4

REPORT INFORMATION
  Report Type: 
  Country: None (occurrence: None)
  Receive Date: 20111208
  Receipt Date: 20111129
  Transmission Date: 20120403
  Serious: No
  Sender: FDA-Public Use
  Company Number: US-BAYER-2011-116257

PATIENT
  Age: 56 Year
  Sex: Male

DRUGS (4)
  1. CIPROFLOXACIN [Concomitant]
  2. PROTONIX [Concomitant]
     Dosage: UNK
  3. SILODOSIN [Suspect]
     Indication: PROSTATITIS
     Dosage: UNK
     Dates: start: 20111103, end: 20111114
  4. ALEVE (CAPLET) [Suspect]
     Indication: PROSTATITIS
     Dosage: UNK
     Dates: start: 20111101

REACTIONS (5)
  - EJACULATION FAILURE [None]
  - TREMOR [None]
  - ANXIETY [None]
  - NERVOUSNESS [None]
  - RETROGRADE EJACULATION [None]
